FAERS Safety Report 12991005 (Version 1)
Quarter: 2016Q4

REPORT INFORMATION
  Report Type: Spontaneous
  Country: US (occurrence: US)
  Receive Date: 20161201
  Receipt Date: 20161201
  Transmission Date: 20170207
  Serious: Yes (Other)
  Sender: FDA-Public Use
  Company Number: None

PATIENT
  Age: 24 Year
  Sex: Female
  Weight: 56.7 kg

DRUGS (1)
  1. DOXYCYCLINE HYCALTE [Suspect]
     Active Substance: DOXYCYCLINE HYCLATE
     Indication: BACTERIAL INFECTION
     Dosage: ?          QUANTITY:14 TABLET(S);?
     Route: 048
     Dates: start: 20161122, end: 20161129

REACTIONS (6)
  - Chest pain [None]
  - Fatigue [None]
  - Chemical injury [None]
  - Foreign body [None]
  - Oropharyngeal pain [None]
  - Oesophageal perforation [None]

NARRATIVE: CASE EVENT DATE: 20161124
